FAERS Safety Report 6366285-X (Version None)
Quarter: 2009Q3

REPORT INFORMATION
  Report Type: 
  Country: None (occurrence: None)
  Receive Date: 20090921
  Receipt Date: 20090908
  Transmission Date: 20100115
  Serious: Yes (Hospitalization)
  Sender: FDA-Public Use
  Company Number: FR-SANOFI-SYNTHELABO-A01200801231

PATIENT
  Age: 43 Year
  Sex: Female

DRUGS (3)
  1. KETOPROFEN [Concomitant]
     Indication: SCIATICA
     Dosage: UNK
     Route: 065
     Dates: start: 20070101
  2. DEXTROPROPOXYPHAN [Suspect]
     Indication: SCIATICA
     Dosage: UNK
     Route: 065
     Dates: start: 20070101
  3. CHLOROQUINE PHOSPHATE [Suspect]
     Indication: SYSTEMIC LUPUS ERYTHEMATOSUS
     Dosage: 4 MG/KG/DAY
     Route: 048
     Dates: start: 20031101, end: 20070101

REACTIONS (4)
  - ATRIOVENTRICULAR BLOCK COMPLETE [None]
  - DRUG INTERACTION [None]
  - DRUG LEVEL ABOVE THERAPEUTIC [None]
  - SYNCOPE [None]
